FAERS Safety Report 25422417 (Version 1)
Quarter: 2025Q2

REPORT INFORMATION
  Report Type: Spontaneous
  Country: US (occurrence: None)
  Receive Date: 20250610
  Receipt Date: 20250610
  Transmission Date: 20250717
  Serious: Yes (Hospitalization)
  Sender: FDA-CTU
  Company Number: None

PATIENT
  Age: 82 Year
  Sex: Male
  Weight: 64 kg

DRUGS (1)
  1. EMPAGLIFLOZIN [Suspect]
     Active Substance: EMPAGLIFLOZIN
     Indication: Diabetes mellitus
     Dosage: 25.00 MG DAILY ORAL
     Route: 048
     Dates: start: 20231020, end: 20250316

REACTIONS (2)
  - Metabolic acidosis [None]
  - Starvation ketoacidosis [None]

NARRATIVE: CASE EVENT DATE: 20250316
